FAERS Safety Report 7817036-0 (Version None)
Quarter: 2011Q4

REPORT INFORMATION
  Report Type: 
  Country: None (occurrence: None)
  Receive Date: 20111014
  Receipt Date: 20111014
  Transmission Date: 20120403
  Serious: No
  Sender: FDA-Public Use
  Company Number: None

PATIENT
  Age: 85 Year
  Sex: Male

DRUGS (1)
  1. IPILIMUMAB 3MG/KG Q 3 WEEKS [Suspect]
     Indication: MALIGNANT MELANOMA
     Dosage: 3MG/KG Q 3 WEEKS
     Dates: start: 20110525, end: 20110810

REACTIONS (1)
  - FAECES DISCOLOURED [None]
